FAERS Safety Report 23248729 (Version 1)
Quarter: 2023Q4

REPORT INFORMATION
  Report Type: Spontaneous
  Country: TW (occurrence: TW)
  Receive Date: 20231201
  Receipt Date: 20231201
  Transmission Date: 20240109
  Serious: Yes (Hospitalization, Other)
  Sender: FDA-Public Use
  Company Number: None

PATIENT
  Age: 29 Year
  Sex: Female
  Weight: 53 kg

DRUGS (19)
  1. AMLODIPINE BESYLATE [Suspect]
     Active Substance: AMLODIPINE BESYLATE
     Indication: Hypertension
     Dosage: UNK
     Route: 065
  2. ASPIRIN [Suspect]
     Active Substance: ASPIRIN
     Indication: Product used for unknown indication
     Dosage: UNK
     Route: 065
  3. EVEROLIMUS [Suspect]
     Active Substance: EVEROLIMUS
     Indication: Product used for unknown indication
     Dosage: 1.5 MG/DAY
     Route: 065
  4. EVEROLIMUS [Suspect]
     Active Substance: EVEROLIMUS
     Dosage: 2.5 MG/DAY
     Route: 065
  5. MYCOPHENOLATE MOFETIL [Suspect]
     Active Substance: MYCOPHENOLATE MOFETIL
     Indication: Immunosuppressant drug therapy
     Dosage: 1500 MILLIGRAM, QD (EVERY ONE DAY)
     Route: 048
  6. MYCOPHENOLATE MOFETIL [Suspect]
     Active Substance: MYCOPHENOLATE MOFETIL
     Dosage: UNK (DOSE DECREASED)
     Route: 048
  7. SIROLIMUS [Suspect]
     Active Substance: SIROLIMUS
     Indication: Immunosuppressant drug therapy
     Dosage: 3 MILLIGRAM, QD (EVERY ONE DAY)
     Route: 065
  8. SIROLIMUS [Suspect]
     Active Substance: SIROLIMUS
     Dosage: UNK (DOSE DECREASED)
     Route: 065
  9. TACROLIMUS [Suspect]
     Active Substance: TACROLIMUS
     Indication: Immunosuppressant drug therapy
     Dosage: 20 MILLIGRAM, QD (EVERY ONE DAY, PROLONGED RELEASE)
     Route: 048
  10. TACROLIMUS [Suspect]
     Active Substance: TACROLIMUS
     Dosage: 17 MG/DAY (EVERY ONE DAY)
     Route: 048
  11. TACROLIMUS [Suspect]
     Active Substance: TACROLIMUS
     Dosage: 11 MILLIGRAM, QD (EVERY ONE DAY, PROLONGED USE)
     Route: 048
  12. TACROLIMUS [Suspect]
     Active Substance: TACROLIMUS
     Dosage: 0.3 MILLIGRAM/KILOGRAM, QD (PER DAY, HIGH DOSE)
     Route: 048
  13. LANSOPRAZOLE [Suspect]
     Active Substance: LANSOPRAZOLE
     Indication: Product used for unknown indication
     Dosage: UNK
     Route: 065
  14. BISOPROLOL [Suspect]
     Active Substance: BISOPROLOL\BISOPROLOL FUMARATE
     Indication: Hypertension
     Dosage: UNK
     Route: 065
  15. INSULIN ASPART [Suspect]
     Active Substance: INSULIN ASPART
     Indication: Product used for unknown indication
     Dosage: 36 INTERNATIONAL UNIT, QD (EVERY ONE DAY)
     Route: 065
  16. INSULIN ASPART [Suspect]
     Active Substance: INSULIN ASPART
     Indication: Product used for unknown indication
     Dosage: 26 INTERNATIONAL UNIT, QD (EVERY ONE DAY)
     Route: 065
  17. PREDNISOLONE [Suspect]
     Active Substance: PREDNISOLONE
     Indication: Immunosuppressant drug therapy
     Dosage: 20 MILLIGRAM, QD (EVERY ONE DAY)
     Route: 048
  18. PREDNISOLONE [Suspect]
     Active Substance: PREDNISOLONE
     Dosage: 2.5 MILLIGRAM, QD (PER DAY)
     Route: 048
  19. PREDNISOLONE [Suspect]
     Active Substance: PREDNISOLONE
     Dosage: 0.4 MILLIGRAM/KILOGRAM, QD (PER DAY, HIGH DOSE)
     Route: 048

REACTIONS (5)
  - Cytomegalovirus infection [Recovered/Resolved]
  - Exposure during pregnancy [Unknown]
  - Immunosuppressant drug level decreased [Unknown]
  - Therapeutic response decreased [Unknown]
  - Therapy partial responder [Unknown]

NARRATIVE: CASE EVENT DATE: 20180101
